FAERS Safety Report 25260306 (Version 2)
Quarter: 2025Q3

REPORT INFORMATION
  Report Type: Spontaneous
  Country: EU (occurrence: EU)
  Receive Date: 20250501
  Receipt Date: 20250802
  Transmission Date: 20251020
  Serious: Yes (Life-Threatening, Disabling, Other)
  Sender: ALEXION PHARMACEUTICALS
  Company Number: EU-ASTRAZENECA-202504GLO027560IE

PATIENT
  Age: 7 Year
  Sex: Female
  Weight: 26 kg

DRUGS (7)
  1. LOSEC [Suspect]
     Active Substance: OMEPRAZOLE
     Indication: Abdominal pain
     Dosage: 20 MILLIGRAM, QD
     Dates: start: 20250107
  2. LOSEC [Suspect]
     Active Substance: OMEPRAZOLE
     Indication: Oral blood blister
     Dosage: 20 MILLIGRAM, QD
     Dates: start: 20250107, end: 20250204
  3. OMEPRAZOLE [Suspect]
     Active Substance: OMEPRAZOLE
     Indication: Reflux gastritis
     Dates: start: 20250107, end: 20250204
  4. MOVICOL [Suspect]
     Active Substance: POLYETHYLENE GLYCOL 3350\POTASSIUM CHLORIDE\SODIUM BICARBONATE\SODIUM CHLORIDE
     Indication: Constipation
  5. SODIUM BICARBONATE [Concomitant]
     Active Substance: SODIUM BICARBONATE
     Route: 065
  6. SODIUM CHLORIDE [Concomitant]
     Active Substance: SODIUM CHLORIDE
     Route: 065
  7. POTASSIUM CHLORIDE [Concomitant]
     Active Substance: POTASSIUM CHLORIDE
     Route: 065

REACTIONS (15)
  - Pain in extremity [Recovered/Resolved]
  - Abdominal pain upper [Recovered/Resolved]
  - Pain [Recovered/Resolved]
  - Malaise [Recovered/Resolved]
  - Gingival bleeding [Recovered/Resolved]
  - Ear haemorrhage [Recovered/Resolved]
  - Umbilical haemorrhage [Recovered/Resolved]
  - Paraesthesia oral [Recovered/Resolved]
  - Ear pain [Recovered/Resolved]
  - Spontaneous haemorrhage [Recovered/Resolved]
  - Muscular weakness [Recovered/Resolved]
  - Paraesthesia [Recovered/Resolved]
  - Mobility decreased [Recovered/Resolved]
  - Aphasia [Recovered/Resolved]
  - Confusional state [Recovered/Resolved]
